FAERS Safety Report 4635787-6 (Version None)
Quarter: 2005Q2

REPORT INFORMATION
  Report Type: 
  Country: None (occurrence: None)
  Receive Date: 20050413
  Receipt Date: 20050406
  Transmission Date: 20051028
  Serious: Yes (Death)
  Sender: FDA-Public Use
  Company Number: GB-YAMANOUCHI-YEHQ20050114

PATIENT
  Age: 72 Year
  Sex: Male

DRUGS (5)
  1. SOLIFENACIN [Suspect]
     Indication: BENIGN PROSTATIC HYPERPLASIA
     Dosage: 5 MG QD PO
     Route: 048
     Dates: start: 20041118
  2. FELODIPINE [Concomitant]
  3. ASPIRIN [Concomitant]
  4. AMOXICILLIN [Concomitant]
  5. TROSPIUM CHLORIDE [Concomitant]

REACTIONS (3)
  - ACUTE MYOCARDIAL INFARCTION [None]
  - MYOCARDIAL ISCHAEMIA [None]
  - SUDDEN DEATH [None]
